FAERS Safety Report 8315495 (Version 4)
Quarter: 2014Q2

REPORT INFORMATION
  Report Type: Spontaneous
  Country: CA (occurrence: CA)
  Receive Date: 20111229
  Receipt Date: 20131120
  Transmission Date: 20141212
  Serious: Yes (Other)
  Sender: FDA-Public Use
  Company Number: CA-TEVA-315020USA

PATIENT
  Age: 32 Year
  Sex: Female
  Weight: 49.89 kg

DRUGS (9)
  1. CARBOPLATIN [Suspect]
     Indication: CERVIX CARCINOMA
  2. PHENYTOIN [Suspect]
     Indication: CONVULSION
     Dosage: 214.2857 MILLIGRAM DAILY; 300 MG, 5 TIMES A WEEK AT BEDTIME
     Route: 048
     Dates: start: 197411, end: 1989
  3. PHENYTOIN [Suspect]
     Indication: POST-TRAUMATIC EPILEPSY
     Dosage: 78.5714 MILLIGRAM DAILY;
     Route: 048
     Dates: start: 1989, end: 20111027
  4. PHENOBARBITAL [Suspect]
     Dates: start: 197411, end: 20111027
  5. CLARITHROMYCIN [Suspect]
  6. MINOCYCLINE [Suspect]
  7. BACTRIM /00086101/ [Suspect]
  8. LEVOTHYROXINE SODIUM [Concomitant]
     Indication: HYPOTHYROIDISM
     Dosage: 100 MICROGRAM DAILY;
     Dates: start: 1980
  9. AMOXICILLIN [Concomitant]

REACTIONS (43)
  - Anticonvulsant drug level decreased [Unknown]
  - Cholecystitis acute [Recovered/Resolved]
  - Lyme disease [Recovered/Resolved]
  - Cervix carcinoma [Unknown]
  - Drop attacks [Recovered/Resolved]
  - Central nervous system lesion [Unknown]
  - Mental impairment [Recovered/Resolved]
  - Nausea [Recovered/Resolved]
  - Dysphagia [Unknown]
  - Somnolence [Recovered/Resolved]
  - Depression [Recovered/Resolved]
  - Crying [Recovered/Resolved]
  - Hypoaesthesia [Recovered/Resolved]
  - Fatigue [Recovered/Resolved]
  - Asthenia [Recovered/Resolved]
  - Feeling abnormal [Recovered/Resolved]
  - Dysarthria [Recovered/Resolved]
  - Speech disorder [Recovered/Resolved]
  - Dyskinesia [Recovered/Resolved]
  - Paraesthesia [Recovered/Resolved]
  - Weight decreased [Unknown]
  - Drug interaction [Unknown]
  - Toxicity to various agents [Unknown]
  - Pain in extremity [Recovered/Resolved]
  - Areflexia [Recovered/Resolved]
  - Vibratory sense increased [Recovered/Resolved]
  - Hyporeflexia [Recovered/Resolved]
  - Muscular weakness [Recovered/Resolved]
  - Blood pressure decreased [Unknown]
  - Personality disorder [Recovered/Resolved]
  - Drug effect increased [Unknown]
  - Abnormal sleep-related event [Recovered/Resolved]
  - Nystagmus [Unknown]
  - Bradyphrenia [Recovered/Resolved]
  - Nervousness [Recovered/Resolved]
  - Anticonvulsant drug level increased [Unknown]
  - Gait disturbance [Recovered/Resolved]
  - Fall [Recovered/Resolved]
  - Increased appetite [Unknown]
  - Sinusitis [Unknown]
  - Bronchitis [Unknown]
  - Tracheitis [Unknown]
  - Ataxia [Recovered/Resolved]
